FAERS Safety Report 5664856-7 (Version None)
Quarter: 2008Q1

REPORT INFORMATION
  Report Type: 
  Country: None (occurrence: None)
  Receive Date: 20080314
  Receipt Date: 20080303
  Transmission Date: 20080703
  Serious: Yes (Other)
  Sender: FDA-Public Use
  Company Number: DE-PFIZER INC-2008019862

PATIENT
  Sex: Male
  Weight: 114 kg

DRUGS (6)
  1. LYRICA [Suspect]
     Indication: POLYNEUROPATHY
     Route: 048
     Dates: start: 20070101, end: 20070101
  2. HUMIRA [Concomitant]
     Route: 058
  3. PREDNISOLONE [Concomitant]
     Route: 048
  4. BISOPROLOL FUMARATE [Concomitant]
     Route: 048
  5. LORZAAR PLUS [Concomitant]
     Route: 048
  6. ALLOPURINOL [Concomitant]
     Route: 048

REACTIONS (2)
  - ABDOMINAL PAIN UPPER [None]
  - DRUG INEFFECTIVE FOR UNAPPROVED INDICATION [None]
